FAERS Safety Report 21575929 (Version 2)
Quarter: 2022Q4

REPORT INFORMATION
  Report Type: Report from Study
  Country: US (occurrence: US)
  Receive Date: 20221110
  Receipt Date: 20221124
  Transmission Date: 20230112
  Serious: Yes (Other)
  Sender: FDA-Public Use
  Company Number: US-BRISTOL-MYERS SQUIBB COMPANY-2022-104092

PATIENT
  Age: 58 Year
  Sex: Female
  Weight: 75.7 kg

DRUGS (2)
  1. REVLIMID [Suspect]
     Active Substance: LENALIDOMIDE
     Indication: Plasma cell myeloma
     Dosage: FREQ: TAKE 1 CAPSULE DAILY FOR 14 DAYS AND 7 DAYS OFF.
     Route: 048
     Dates: start: 20220824
  2. REVLIMID [Suspect]
     Active Substance: LENALIDOMIDE
     Dosage: 14 OUT OF 21 DAYS REST FOR 7 DAYS REPEAT
     Route: 065
     Dates: start: 20220824

REACTIONS (18)
  - Epistaxis [Unknown]
  - Blood cholesterol increased [Unknown]
  - Pharyngeal swelling [Unknown]
  - Influenza like illness [Unknown]
  - Chest pain [Recovered/Resolved]
  - Musculoskeletal chest pain [Unknown]
  - Rash [Recovered/Resolved]
  - Treatment noncompliance [Unknown]
  - Extra dose administered [Unknown]
  - Off label use [Unknown]
  - Abdominal pain upper [Unknown]
  - Fatigue [Unknown]
  - Malaise [Unknown]
  - Dizziness [Unknown]
  - Eating disorder [Unknown]
  - Tooth disorder [Unknown]
  - Headache [Unknown]
  - Immunodeficiency [Unknown]
